FAERS Safety Report 7528890-4 (Version None)
Quarter: 2011Q2

REPORT INFORMATION
  Report Type: 
  Country: None (occurrence: None)
  Receive Date: 20110607
  Receipt Date: 20110524
  Transmission Date: 20111010
  Serious: Yes (Other)
  Sender: FDA-Public Use
  Company Number: US-JNJFOC-20110405047

PATIENT
  Sex: Female
  Weight: 63.5 kg

DRUGS (7)
  1. VALTREX [Concomitant]
     Indication: HERPES VIRUS INFECTION
     Route: 048
     Dates: start: 19890101
  2. FERROUS SULFATE TAB [Concomitant]
     Indication: NUTRITIONAL SUPPORT
     Route: 048
  3. FLEXERIL [Suspect]
     Indication: INTERVERTEBRAL DISC PROTRUSION
     Dates: start: 20000101
  4. ASACOL [Concomitant]
     Indication: COLITIS ULCERATIVE
     Route: 048
     Dates: start: 20090101
  5. REMICADE [Suspect]
     Indication: COLITIS ULCERATIVE
     Route: 042
     Dates: start: 20101221, end: 20110124
  6. CHONDROITIN SULFATE W/GLUCOSAMINE [Concomitant]
     Indication: NUTRITIONAL SUPPORT
  7. FISH OIL [Concomitant]
     Indication: NUTRITIONAL SUPPORT
     Route: 048

REACTIONS (8)
  - PYREXIA [None]
  - INFLUENZA LIKE ILLNESS [None]
  - PAIN [None]
  - VOMITING [None]
  - ABNORMAL LOSS OF WEIGHT [None]
  - MYALGIA [None]
  - ALOPECIA [None]
  - NAUSEA [None]
